FAERS Safety Report 20589194 (Version 1)
Quarter: 2022Q1

REPORT INFORMATION
  Report Type: Spontaneous
  Country: US (occurrence: None)
  Receive Date: 20220312
  Receipt Date: 20220312
  Transmission Date: 20220423
  Serious: Yes (Hospitalization)
  Sender: FDA-Public Use
  Company Number: None

PATIENT
  Age: 69 Year
  Sex: Male
  Weight: 100 kg

DRUGS (1)
  1. RIVAROXABAN [Suspect]
     Active Substance: RIVAROXABAN
     Dosage: FREQUENCY : DAILY;?
     Route: 048
     Dates: start: 20180614, end: 20211208

REACTIONS (2)
  - Abdominal wall haematoma [None]
  - Haemorrhage [None]

NARRATIVE: CASE EVENT DATE: 20211208
